FAERS Safety Report 9001302 (Version 1)
Quarter: 2013Q1

REPORT INFORMATION
  Report Type: Spontaneous
  Country: US (occurrence: US)
  Receive Date: 20130107
  Receipt Date: 20130107
  Transmission Date: 20140127
  Serious: Yes (Hospitalization, Other)
  Sender: FDA-Public Use
  Company Number: CHPA2012US025583

PATIENT
  Age: 75 Year
  Sex: Female

DRUGS (3)
  1. NODOZ [Suspect]
     Indication: NARCOLEPSY
     Dosage: 1/2 CAPLET DAILY
     Route: 048
     Dates: start: 1953, end: 2011
  2. ANTIHYPERTENSIVES [Suspect]
     Indication: HYPERTENSION
  3. RESTERAL [Concomitant]
     Indication: SLEEP DISORDER

REACTIONS (10)
  - Back pain [Recovered/Resolved]
  - Hypertension [Recovered/Resolved]
  - Myocardial infarction [Recovered/Resolved]
  - Diabetes mellitus [Not Recovered/Not Resolved]
  - Cardiac disorder [Recovered/Resolved]
  - Chest pain [Recovered/Resolved]
  - Stress [Recovered/Resolved]
  - Restless legs syndrome [Not Recovered/Not Resolved]
  - Therapeutic response unexpected [Unknown]
  - Off label use [Unknown]
